FAERS Safety Report 15216833 (Version 1)
Quarter: 2018Q3

REPORT INFORMATION
  Report Type: Report from Study
  Country: US (occurrence: US)
  Receive Date: 20180730
  Receipt Date: 20180730
  Transmission Date: 20181010
  Serious: Yes (Other)
  Sender: FDA-Public Use
  Company Number: US-ACTELION-A-US2018-176394

PATIENT
  Age: 27 Year
  Sex: Female

DRUGS (2)
  1. NIFEDIPINE. [Concomitant]
     Active Substance: NIFEDIPINE
  2. TRACLEER [Suspect]
     Active Substance: BOSENTAN
     Indication: PULMONARY HYPERTENSION
     Dosage: 125 MG, UNK
     Route: 048
     Dates: start: 201801

REACTIONS (5)
  - Dizziness [Recovered/Resolved]
  - Fatigue [Recovered/Resolved]
  - Arthralgia [Unknown]
  - Biopsy kidney [Unknown]
  - Systemic lupus erythematosus [Unknown]
